FAERS Safety Report 9147735 (Version 1)
Quarter: 2013Q1

REPORT INFORMATION
  Report Type: Spontaneous
  Country: US (occurrence: US)
  Receive Date: 20130307
  Receipt Date: 20130307
  Transmission Date: 20140127
  Serious: No
  Sender: FDA-Public Use
  Company Number: US-ASTRAZENECA-2013SE12812

PATIENT
  Age: 46 Year
  Sex: Female
  Weight: 102.1 kg

DRUGS (4)
  1. NEXIUM [Suspect]
     Indication: GASTROOESOPHAGEAL REFLUX DISEASE
     Route: 048
     Dates: start: 2003
  2. MORPHINE [Concomitant]
     Indication: PAIN
     Dates: start: 201205
  3. OXYCODONE [Concomitant]
     Indication: PAIN
     Dates: start: 1998
  4. CYMBALTA [Concomitant]
     Indication: ANXIETY
     Dates: start: 201208

REACTIONS (3)
  - Sleep apnoea syndrome [Unknown]
  - Insomnia [Unknown]
  - Somnolence [Unknown]
